FAERS Safety Report 5424095-1 (Version None)
Quarter: 2007Q3

REPORT INFORMATION
  Report Type: 
  Country: None (occurrence: None)
  Receive Date: 20070823
  Receipt Date: 20070813
  Transmission Date: 20080115
  Serious: Yes (Hospitalization)
  Sender: FDA-Public Use
  Company Number: CA-PFIZER INC-2007033081

PATIENT
  Sex: Female

DRUGS (21)
  1. SU-011,248 [Suspect]
     Indication: RENAL CELL CARCINOMA STAGE UNSPECIFIED
     Route: 048
     Dates: start: 20060213, end: 20070430
  2. NOVOSPIROTON [Concomitant]
  3. FUROSEMIDE [Concomitant]
  4. AMITRIPTYLINE HCL [Concomitant]
  5. SOFLAX [Concomitant]
  6. BONAMINE [Concomitant]
  7. PREDNISONE TAB [Concomitant]
  8. HYDROMORPHONE HCL [Concomitant]
  9. REACTINE [Concomitant]
  10. FLONASE [Concomitant]
  11. QVAR 40 [Concomitant]
  12. ISOPTO TEARS [Concomitant]
  13. TYLENOL [Concomitant]
  14. DILAUDID [Concomitant]
  15. STOMATOLOGICALS, MOUTH PREPARATIONS [Concomitant]
  16. HYDROMORPHONE HYDROCHLORIDE [Concomitant]
  17. LOPERAMIDE HYDROCHLORIDE [Concomitant]
  18. LOPERAMIDE HCL [Concomitant]
  19. NOVOGESIC [Concomitant]
  20. AMLODIPINE [Concomitant]
  21. TERBINAFINE HCL [Concomitant]

REACTIONS (2)
  - ASTHENIA [None]
  - CONFUSIONAL STATE [None]
